FAERS Safety Report 5456172-3 (Version None)
Quarter: 2007Q3

REPORT INFORMATION
  Report Type: 
  Country: None (occurrence: None)
  Receive Date: 20070918
  Receipt Date: 20070330
  Transmission Date: 20080115
  Serious: Yes (Other)
  Sender: FDA-Public Use
  Company Number: US-ASTRAZENECA-2006UW23232

PATIENT
  Age: 50 Year
  Sex: Male
  Weight: 109.1 kg

DRUGS (1)
  1. SEROQUEL [Suspect]
     Indication: DEPRESSION
     Route: 048
     Dates: start: 20030101

REACTIONS (3)
  - BLOOD CHOLESTEROL INCREASED [None]
  - DIABETIC COMA [None]
  - TYPE 2 DIABETES MELLITUS [None]
